FAERS Safety Report 10261490 (Version 1)
Quarter: 2014Q2

REPORT INFORMATION
  Report Type: Spontaneous
  Country: CH (occurrence: CH)
  Receive Date: 20140626
  Receipt Date: 20140626
  Transmission Date: 20141212
  Serious: Yes (Hospitalization)
  Sender: FDA-Public Use
  Company Number: CH-US-EMD SERONO, INC.-7301437

PATIENT
  Sex: Female
  Weight: 70 kg

DRUGS (4)
  1. REBIF [Suspect]
     Indication: RELAPSING-REMITTING MULTIPLE SCLEROSIS
     Route: 058
     Dates: start: 20050901
  2. EUTHYROX [Suspect]
     Indication: HYPOTHYROIDISM
     Route: 048
  3. CYMBALTA [Suspect]
     Indication: NEURALGIA
     Route: 048
     Dates: start: 20130503
  4. PANADOL                            /00020001/ [Concomitant]
     Indication: PROPHYLAXIS
     Route: 048
     Dates: start: 20050901

REACTIONS (1)
  - Deep vein thrombosis [Not Recovered/Not Resolved]
